FAERS Safety Report 6757029-8 (Version None)
Quarter: 2010Q2

REPORT INFORMATION
  Report Type: 
  Country: None (occurrence: None)
  Receive Date: 20100604
  Receipt Date: 20100524
  Transmission Date: 20101027
  Serious: Yes (Hospitalization, Disabling)
  Sender: FDA-Public Use
  Company Number: US-ELI_LILLY_AND_COMPANY-US200911006241

PATIENT
  Sex: Male
  Weight: 78.005 kg

DRUGS (21)
  1. ZYPREXA [Suspect]
     Dosage: 1 D/F, UNK
     Dates: start: 20000101, end: 20070101
  2. ZYPREXA [Suspect]
     Dosage: 5 MG, UNK
  3. ZYPREXA [Suspect]
     Dosage: 10 MG, UNK
  4. ZYPREXA [Suspect]
     Dosage: 15 MG, UNK
  5. ZYPREXA [Suspect]
     Dosage: 20 MG, DAILY (1/D)
  6. ABILIFY [Concomitant]
     Dosage: 20 MG, UNK
     Dates: start: 20060101, end: 20070101
  7. ABILIFY [Concomitant]
     Dosage: 30 MG, UNK
  8. ABILIFY [Concomitant]
     Dosage: 10 MG, DAILY (1/D)
  9. VENLAX [Concomitant]
     Dosage: 150 MG, UNK
     Dates: end: 20080101
  10. VENLAX [Concomitant]
     Dosage: 75 MG, UNK
  11. TRAZODONE HCL [Concomitant]
     Dosage: 50 MG, UNK
  12. TRAZODONE HCL [Concomitant]
     Dosage: 100 MG, UNK
  13. TRAZODONE HCL [Concomitant]
     Dosage: 200 MG, EACH EVENING
  14. PREDNISOLONE [Concomitant]
     Dates: start: 20081001
  15. INVEGA [Concomitant]
     Dosage: 6 MG, UNK
  16. INVEGA [Concomitant]
     Dosage: 3 MG, UNK
  17. EFFEXOR XR [Concomitant]
     Dosage: 225 MG, DAILY (1/D)
  18. VICODIN [Concomitant]
     Indication: PAIN
     Dosage: 1 D/F, EVERY 6 HRS
  19. NAPROXEN [Concomitant]
     Dosage: 500 MG, 2/D
     Dates: start: 20071128
  20. MARIJUANA [Concomitant]
  21. COCAINE [Concomitant]

REACTIONS (10)
  - CELLULITIS [None]
  - DEPRESSION [None]
  - HYPOGONADISM [None]
  - METABOLIC DISORDER [None]
  - NEUTROPHIL COUNT INCREASED [None]
  - OBESITY [None]
  - SUICIDAL IDEATION [None]
  - TYPE 2 DIABETES MELLITUS [None]
  - WEIGHT INCREASED [None]
  - WHITE BLOOD CELL COUNT INCREASED [None]
